FAERS Safety Report 4424070-X (Version None)
Quarter: 2004Q3

REPORT INFORMATION
  Report Type: 
  Country: None (occurrence: None)
  Receive Date: 20040806
  Receipt Date: 20040729
  Transmission Date: 20050211
  Serious: Yes (Other)
  Sender: FDA-Public Use
  Company Number: TCI2003A03419

PATIENT
  Age: 57 Year
  Sex: Male

DRUGS (4)
  1. ACTOS [Suspect]
     Indication: DIABETES MELLITUS NON-INSULIN-DEPENDENT
     Dosage: 15 MG (15 MG, 1 INI 1 D) PER ORAL
     Route: 048
     Dates: start: 20000726, end: 20000807
  2. ISOSORBIDE MONONITRATE [Concomitant]
  3. BUFFERIN [Concomitant]
  4. ETIZOLAM [Concomitant]

REACTIONS (1)
  - CHOLECYSTITIS ACUTE [None]
